FAERS Safety Report 18380163 (Version 1)
Quarter: 2020Q4

REPORT INFORMATION
  Report Type: Spontaneous
  Country: US (occurrence: US)
  Receive Date: 20201013
  Receipt Date: 20201013
  Transmission Date: 20210114
  Serious: Yes (Other)
  Sender: FDA-Public Use
  Company Number: US-ELI_LILLY_AND_COMPANY-US201908015141

PATIENT

DRUGS (1)
  1. TRULICITY [Suspect]
     Active Substance: DULAGLUTIDE
     Indication: PRODUCT USED FOR UNKNOWN INDICATION
     Dosage: UNK UNK, UNKNOWN
     Route: 065
     Dates: start: 201907, end: 201907

REACTIONS (8)
  - Liver disorder [Unknown]
  - Gastric disorder [Unknown]
  - Vomiting [Unknown]
  - Muscle spasms [Unknown]
  - Pancreatitis [Unknown]
  - Dehydration [Unknown]
  - Diarrhoea [Unknown]
  - Weight increased [Unknown]
